FAERS Safety Report 4282588-7 (Version None)
Quarter: 2004Q1

REPORT INFORMATION
  Report Type: 
  Country: None (occurrence: None)
  Receive Date: 20040130
  Receipt Date: 20020417
  Transmission Date: 20041129
  Serious: No
  Sender: FDA-Public Use
  Company Number: US-BRISTOL-MYERS SQUIBB COMPANY-11828084

PATIENT
  Age: 47 Year
  Sex: Female
  Weight: 68 kg

DRUGS (10)
  1. SERZONE [Suspect]
     Indication: DEPRESSION
     Route: 048
     Dates: start: 20000101
  2. ZOMIG [Concomitant]
  3. TIAZAC [Concomitant]
     Indication: MIGRAINE
     Route: 048
  4. IMITREX [Concomitant]
  5. MIDRIN [Concomitant]
  6. ZANTAC [Concomitant]
  7. ESTRACE [Concomitant]
  8. LOTRISONE [Concomitant]
     Indication: ECZEMA
     Route: 061
  9. CLARITIN [Concomitant]
     Route: 048
  10. VIOXX [Concomitant]
     Route: 048

REACTIONS (7)
  - ALANINE AMINOTRANSFERASE INCREASED [None]
  - FATIGUE [None]
  - GASTROOESOPHAGEAL REFLUX DISEASE [None]
  - HEPATIC STEATOSIS [None]
  - HYPERTRIGLYCERIDAEMIA [None]
  - IRRITABLE BOWEL SYNDROME [None]
  - UNEVALUABLE EVENT [None]
